FAERS Safety Report 7897864-6 (Version None)
Quarter: 2011Q4

REPORT INFORMATION
  Report Type: 
  Country: None (occurrence: None)
  Receive Date: 20111107
  Receipt Date: 20111024
  Transmission Date: 20120403
  Serious: Yes (Other)
  Sender: FDA-Public Use
  Company Number: PHHY2011US95175

PATIENT
  Age: 43 Year
  Sex: Female

DRUGS (2)
  1. CYCLOSPORINE [Suspect]
     Indication: LIVER TRANSPLANT
     Dosage: UNK UKN, UNK
  2. SIROLIMUS [Concomitant]
     Dosage: UNK UKN, UNK

REACTIONS (10)
  - RENAL FAILURE CHRONIC [None]
  - BLOOD CREATININE INCREASED [None]
  - PROTEIN URINE PRESENT [None]
  - RENAL ARTERIOSCLEROSIS [None]
  - KIDNEY FIBROSIS [None]
  - GLOMERULOSCLEROSIS [None]
  - ARTERIAL DISORDER [None]
  - FOCAL SEGMENTAL GLOMERULOSCLEROSIS [None]
  - RENAL TUBULAR ATROPHY [None]
  - RENAL DISORDER [None]
